FAERS Safety Report 18007815 (Version 5)
Quarter: 2020Q3

REPORT INFORMATION
  Report Type: Report from Study
  Country: US (occurrence: US)
  Receive Date: 20200710
  Receipt Date: 20200730
  Transmission Date: 20201103
  Serious: Yes (Hospitalization, Other)
  Sender: FDA-Public Use
  Company Number: US-JNJFOC-20200703648

PATIENT
  Age: 69 Year
  Sex: Male

DRUGS (5)
  1. APALUTAMIDE [Suspect]
     Active Substance: APALUTAMIDE
     Indication: PROSTATE CANCER
     Dosage: MOST RECENT DOSE ON 28?JUN?2020
     Route: 048
     Dates: start: 20191125
  2. PREDNISONE. [Suspect]
     Active Substance: PREDNISONE
     Indication: PROSTATE CANCER
     Dosage: MOST RECENT DOSE ON 28?JUN?2020
     Route: 048
     Dates: start: 20191125
  3. TOPAMAX [Concomitant]
     Active Substance: TOPIRAMATE
     Indication: HEADACHE
     Route: 048
     Dates: start: 20200624, end: 20200627
  4. ABIRATERONE ACETATE. [Suspect]
     Active Substance: ABIRATERONE ACETATE
     Indication: PROSTATE CANCER
     Dosage: MOST RECENT DOSE ON 28?JUN?2020
     Route: 048
     Dates: start: 20191125
  5. LEUPROLIDE                         /00726901/ [Suspect]
     Active Substance: LEUPROLIDE
     Indication: PROSTATE CANCER
     Dosage: MOST RECENT DOSE ON 08?JUN?2020
     Route: 030
     Dates: start: 20191125

REACTIONS (1)
  - Migraine [Recovered/Resolved]

NARRATIVE: CASE EVENT DATE: 20200628
